FAERS Safety Report 12275948 (Version 1)
Quarter: 2016Q2

REPORT INFORMATION
  Report Type: Spontaneous
  Country: US (occurrence: US)
  Receive Date: 20160418
  Receipt Date: 20160418
  Transmission Date: 20160815
  Serious: Yes (Hospitalization, Other)
  Sender: FDA-Public Use
  Company Number: US-ACCORD-039588

PATIENT
  Age: 81 Year
  Sex: Female

DRUGS (11)
  1. ALPRAZOLAM. [Concomitant]
     Active Substance: ALPRAZOLAM
  2. IOHEXOL [Concomitant]
     Active Substance: IOHEXOL
     Dosage: 240MG/ML
  3. KETOROLAC [Suspect]
     Active Substance: KETOROLAC\KETOROLAC TROMETHAMINE
     Indication: PAIN
     Route: 030
  4. OMEPRAZOLE. [Concomitant]
     Active Substance: OMEPRAZOLE
  5. PARACETAMOL/PROPOXYPHENE [Concomitant]
  6. BETAMETHASONE. [Concomitant]
     Active Substance: BETAMETHASONE
     Dosage: PRESERVATIVE-FREE BETAMETHASONE (6 MG/ML)
  7. CLOPIDOGREL [Suspect]
     Active Substance: CLOPIDOGREL BISULFATE
     Indication: TRANSIENT ISCHAEMIC ATTACK
     Dosage: STARTED 2 YEARS BEFORE
  8. OLMESARTAN/OLMESARTAN MEDOXOMIL [Concomitant]
  9. CALCIUM CARBONATE/CALCIUM LACTOGLUCONATE [Concomitant]
     Route: 048
  10. FENOFIBRATE. [Concomitant]
     Active Substance: FENOFIBRATE
  11. HYDROCODONE/PARACETAMOL [Concomitant]

REACTIONS (1)
  - Extradural haematoma [Recovered/Resolved]
